FAERS Safety Report 9701848 (Version 2)
Quarter: 2014Q1

REPORT INFORMATION
  Report Type: Spontaneous
  Country: US (occurrence: US)
  Receive Date: 20131121
  Receipt Date: 20140110
  Transmission Date: 20141002
  Serious: Yes (Death)
  Sender: FDA-Public Use
  Company Number: US-PFIZER INC-2013332600

PATIENT
  Age: 66 Year
  Sex: Female

DRUGS (2)
  1. AROMASIN [Suspect]
     Indication: BREAST CANCER
     Dosage: 25 MG, DAILY
     Route: 048
     Dates: start: 20130821, end: 20131022
  2. AFINITOR [Concomitant]
     Indication: BREAST CANCER METASTATIC
     Dosage: 10 MG, DAILY
     Dates: end: 20131022

REACTIONS (2)
  - Disease progression [Fatal]
  - Breast cancer [Fatal]
